FAERS Safety Report 10203251 (Version 1)
Quarter: 2014Q2

REPORT INFORMATION
  Report Type: Other
  Country: GB (occurrence: GB)
  Receive Date: 20140529
  Receipt Date: 20140529
  Transmission Date: 20141212
  Serious: Yes (Hospitalization)
  Sender: FDA-Public Use
  Company Number: GB-SUN PHARMACEUTICAL INDUSTRIES LTD-2014SUN01159

PATIENT
  Sex: 0

DRUGS (2)
  1. VENLAFAXINE HYDROCHLORIDE 37.5MG TABLET [Suspect]
     Indication: DEPRESSION
     Dosage: 37.5 MG, UNK
     Route: 048
     Dates: start: 20140423, end: 20140501
  2. MAGNESIUM [Concomitant]

REACTIONS (1)
  - Subarachnoid haemorrhage [Not Recovered/Not Resolved]
